FAERS Safety Report 21804605 (Version 6)
Quarter: 2023Q2

REPORT INFORMATION
  Report Type: Report from Study
  Country: US (occurrence: US)
  Receive Date: 20230102
  Receipt Date: 20230527
  Transmission Date: 20230721
  Serious: Yes (Other)
  Sender: FDA-Public Use
  Company Number: US-002147023-NVSC2022US301762

PATIENT
  Sex: Female

DRUGS (3)
  1. ENTRESTO [Suspect]
     Active Substance: SACUBITRIL\VALSARTAN
     Indication: Product used for unknown indication
     Dosage: 1 DOSAGE FORM, BID
     Route: 065
  2. ENTRESTO [Suspect]
     Active Substance: SACUBITRIL\VALSARTAN
     Dosage: 1 DOSAGE FORM, BID
     Route: 065
  3. ENTRESTO [Suspect]
     Active Substance: SACUBITRIL\VALSARTAN
     Dosage: 1 DOSAGE FORM, BID (24/26MG)
     Route: 065

REACTIONS (11)
  - Pericardial effusion [Unknown]
  - Peripheral swelling [Recovering/Resolving]
  - Ejection fraction decreased [Unknown]
  - Sleep disorder [Unknown]
  - Nocturia [Unknown]
  - Malaise [Unknown]
  - Rhinorrhoea [Unknown]
  - Dry throat [Unknown]
  - Hypersomnia [Unknown]
  - Fatigue [Unknown]
  - Cough [Not Recovered/Not Resolved]
